FAERS Safety Report 6986157-7 (Version None)
Quarter: 2010Q3

REPORT INFORMATION
  Report Type: 
  Country: None (occurrence: None)
  Receive Date: 20100915
  Receipt Date: 20090601
  Transmission Date: 20110219
  Serious: No
  Sender: FDA-Public Use
  Company Number: US-WYE-H09566309

PATIENT
  Sex: Female
  Weight: 74.91 kg

DRUGS (5)
  1. PRISTIQ [Suspect]
     Indication: BIPOLAR DISORDER
     Route: 048
  2. OMEPRAZOLE [Concomitant]
  3. LIPITOR [Concomitant]
  4. LAMICTAL [Concomitant]
  5. ALPRAZOLAM [Concomitant]

REACTIONS (3)
  - ABDOMINAL PAIN UPPER [None]
  - INSOMNIA [None]
  - NAUSEA [None]
